FAERS Safety Report 4411190-9 (Version None)
Quarter: 2004Q2

REPORT INFORMATION
  Report Type: 
  Country: None (occurrence: None)
  Receive Date: 20040630
  Receipt Date: 20040514
  Transmission Date: 20050107
  Serious: No
  Sender: FDA-Public Use
  Company Number: 04P-163-0260914-00

PATIENT
  Age: 66 Year
  Sex: Female
  Weight: 68.0396 kg

DRUGS (6)
  1. HUMIRA [Suspect]
     Indication: RHEUMATOID ARTHRITIS
     Dosage: 40 MG, 1 IN 2 WK, SUBCUTANEOUS
     Route: 058
     Dates: start: 20030101
  2. CAPTOPRIL [Concomitant]
  3. FOLIC ACID [Concomitant]
  4. FLUOXETINE HCL [Concomitant]
  5. OXYCODONE HCL [Concomitant]
  6. MULTI-VITAMINS [Concomitant]

REACTIONS (4)
  - COUGH [None]
  - EYE PRURITUS [None]
  - NASAL DISCOMFORT [None]
  - THROAT IRRITATION [None]
